FAERS Safety Report 7683601-7 (Version None)
Quarter: 2011Q3

REPORT INFORMATION
  Report Type: 
  Country: None (occurrence: None)
  Receive Date: 20110815
  Receipt Date: 20110814
  Transmission Date: 20111222
  Serious: Yes (Other)
  Sender: FDA-Public Use
  Company Number: US-PFIZER INC-2011186378

PATIENT
  Age: 8 Year
  Sex: Male
  Weight: 27.211 kg

DRUGS (2)
  1. DIMETAPP [Suspect]
     Indication: SNEEZING
     Dosage: 2 TEASPOONS (FIRST DOSE)
     Route: 048
     Dates: start: 20110814
  2. DIMETAPP [Suspect]
     Indication: RHINORRHOEA

REACTIONS (1)
  - DYSKINESIA [None]
